FAERS Safety Report 5787348-3 (Version None)
Quarter: 2008Q2

REPORT INFORMATION
  Report Type: 
  Country: None (occurrence: None)
  Receive Date: 20080625
  Receipt Date: 20070905
  Transmission Date: 20081010
  Serious: No
  Sender: FDA-Public Use
  Company Number: US-ASTRAZENECA-2007UW21039

PATIENT
  Age: 59 Year
  Sex: Female
  Weight: 69.4 kg

DRUGS (4)
  1. PULMICORT FLEXHALER [Suspect]
     Route: 055
  2. COZAAR [Concomitant]
  3. UNSPECIFIED MUSCLE RELAXERS [Concomitant]
  4. XANAX [Concomitant]

REACTIONS (2)
  - DYSPNOEA [None]
  - MUSCLE TIGHTNESS [None]
